FAERS Safety Report 6193861-X (Version None)
Quarter: 2009Q2

REPORT INFORMATION
  Report Type: 
  Country: None (occurrence: None)
  Receive Date: 20090518
  Receipt Date: 20090511
  Transmission Date: 20091009
  Serious: No
  Sender: FDA-Public Use
  Company Number: US-B.I. PHARMACEUTICALS,INC./RIDGEFIELD-2009-BP-05936BP

PATIENT
  Sex: Female

DRUGS (2)
  1. COMBIVENT [Suspect]
     Indication: ALLERGIC BRONCHITIS
     Dosage: 12PUF
     Route: 055
     Dates: start: 20090218
  2. COMBIVENT [Suspect]
     Indication: ASTHMA

REACTIONS (2)
  - FOOD ALLERGY [None]
  - OROPHARYNGEAL PAIN [None]
